FAERS Safety Report 13540208 (Version 3)
Quarter: 2017Q2

REPORT INFORMATION
  Report Type: Report from Study
  Country: CO (occurrence: CO)
  Receive Date: 20170512
  Receipt Date: 20170614
  Transmission Date: 20170830
  Serious: Yes (Hospitalization)
  Sender: FDA-Public Use
  Company Number: PHHY2017CO067871

PATIENT
  Age: 18 Year
  Sex: Female
  Weight: 40 kg

DRUGS (5)
  1. EXJADE [Suspect]
     Active Substance: DEFERASIROX
     Indication: THALASSAEMIA
     Dosage: 500 MG, QD
     Route: 048
     Dates: start: 20131115
  2. ZINC SULFATE [Concomitant]
     Active Substance: ZINC SULFATE\ZINC SULFATE ANHYDROUS
     Indication: PRODUCT USED FOR UNKNOWN INDICATION
     Route: 065
  3. HYDROXYUREA. [Concomitant]
     Active Substance: HYDROXYUREA
     Indication: PRODUCT USED FOR UNKNOWN INDICATION
     Dosage: 3 DF, QD
     Route: 065
  4. FOLIC ACID. [Concomitant]
     Active Substance: FOLIC ACID
     Indication: PRODUCT USED FOR UNKNOWN INDICATION
     Route: 065
  5. EXJADE [Suspect]
     Active Substance: DEFERASIROX
     Dosage: 500 MG, TID
     Route: 048
     Dates: start: 20170428

REACTIONS (9)
  - Thalassaemia [Unknown]
  - Dizziness [Unknown]
  - Effusion [Unknown]
  - Incorrect dose administered [Unknown]
  - Disease progression [Unknown]
  - Vertigo [Unknown]
  - Hypotension [Not Recovered/Not Resolved]
  - Hydrocephalus [Unknown]
  - Hemiparesis [Unknown]

NARRATIVE: CASE EVENT DATE: 20170417
